FAERS Safety Report 16084798 (Version 1)
Quarter: 2019Q1

REPORT INFORMATION
  Report Type: Spontaneous
  Country: US (occurrence: US)
  Receive Date: 20190318
  Receipt Date: 20190318
  Transmission Date: 20190418
  Serious: No
  Sender: FDA-Public Use
  Company Number: US-AVADEL SPECIALTY PHARMACEUTICALS, LLC-2019AVA00039

PATIENT
  Age: 63 Year
  Sex: Male

DRUGS (4)
  1. FLONASE [Concomitant]
     Active Substance: FLUTICASONE PROPIONATE
     Route: 045
  2. NOCTIVA [Suspect]
     Active Substance: DESMOPRESSIN ACETATE
     Dosage: 1.66 ?G (1 SPRAY IN EACH NOSTRIL), 1X/DAY 30 MINUTES BEFORE BEDTIME
     Route: 045
     Dates: start: 20190128, end: 20190129
  3. NOCTIVA [Suspect]
     Active Substance: DESMOPRESSIN ACETATE
     Indication: NOCTURIA
     Dosage: 1.66 ?G, (1 SPRAY IN EACH NOSTRIL), 1X/DAY 30 MINUTES BEFORE BEDTIME
     Route: 045
     Dates: start: 2018, end: 2018
  4. NOCTIVA [Suspect]
     Active Substance: DESMOPRESSIN ACETATE
     Dosage: 1.66 ?G (1 SPRAY IN EACH NOSTRIL), 1X/DAY 30 MINUTES BEFORE BEDTIME
     Route: 045
     Dates: start: 20190131, end: 20190208

REACTIONS (9)
  - Sinus pain [Recovering/Resolving]
  - Upper-airway cough syndrome [Not Recovered/Not Resolved]
  - Expired product administered [Recovered/Resolved]
  - Product preparation issue [Recovered/Resolved]
  - Erythema [Not Recovered/Not Resolved]
  - Product storage error [Recovered/Resolved]
  - Nasal discomfort [Recovering/Resolving]
  - Rhinorrhoea [Not Recovered/Not Resolved]
  - Inappropriate schedule of product administration [Unknown]

NARRATIVE: CASE EVENT DATE: 2018
